FAERS Safety Report 5373472-6 (Version None)
Quarter: 2007Q2

REPORT INFORMATION
  Report Type: 
  Country: None (occurrence: None)
  Receive Date: 20070626
  Receipt Date: 20070626
  Transmission Date: 20071010
  Serious: Yes (Other)
  Sender: FDA-Public Use
  Company Number: None

PATIENT
  Sex: Male

DRUGS (5)
  1. REVLIMID [Suspect]
     Indication: MULTIPLE MYELOMA
     Dosage: 15MG  DAILY 21D/28D  PO
     Route: 048
  2. PROCRIT [Concomitant]
  3. NEUPOGEN [Concomitant]
  4. DEXAMETHASONE 0.5MG TAB [Concomitant]
  5. DOXYCYCLINE [Concomitant]

REACTIONS (3)
  - ANAEMIA [None]
  - LEUKOPENIA [None]
  - THROMBOCYTOPENIA [None]
